FAERS Safety Report 4406092-8 (Version None)
Quarter: 2004Q3

REPORT INFORMATION
  Report Type: 
  Country: None (occurrence: None)
  Receive Date: 20040715
  Receipt Date: 20040629
  Transmission Date: 20050211
  Serious: Yes (Life-Threatening, Hospitalization)
  Sender: FDA-Public Use
  Company Number: 2002-BP-00023BP (1)

PATIENT
  Age: 3 Year
  Sex: Female
  Weight: 13.9 kg

DRUGS (4)
  1. VIRAMUNE [Suspect]
     Indication: HIV INFECTION
     Dosage: 240 MG (120 MG, 2 IN 1 D), PO
     Route: 048
     Dates: start: 19980729, end: 20011103
  2. EPIVIR [Concomitant]
  3. ZERIT [Concomitant]
  4. NELFINAVIR [Concomitant]

REACTIONS (3)
  - GENITAL ULCERATION [None]
  - NEUTROPENIA [None]
  - PYREXIA [None]
